FAERS Safety Report 6197225-4 (Version None)
Quarter: 2009Q2

REPORT INFORMATION
  Report Type: 
  Country: None (occurrence: None)
  Receive Date: 20090521
  Receipt Date: 20080321
  Transmission Date: 20091009
  Serious: Yes (Hospitalization)
  Sender: FDA-Public Use
  Company Number: US-ASTRAZENECA-2008UW01198

PATIENT
  Age: 18147 Day
  Sex: Female
  Weight: 73.5 kg

DRUGS (44)
  1. SEROQUEL [Suspect]
     Indication: INSOMNIA
     Dosage: 25-600 MG
     Route: 048
     Dates: start: 20020506
  2. SEROQUEL [Suspect]
     Indication: BIPOLAR I DISORDER
     Dosage: 25-600 MG
     Route: 048
     Dates: start: 20020506
  3. SEROQUEL [Suspect]
     Dosage: 100MG - 1200MG
     Route: 048
     Dates: start: 20021224, end: 20070101
  4. SEROQUEL [Suspect]
     Dosage: 100MG - 1200MG
     Route: 048
     Dates: start: 20021224, end: 20070101
  5. RISPERDAL [Concomitant]
     Dosage: 1-3 MG DISPENSED
     Route: 048
  6. XANAX [Concomitant]
     Route: 048
  7. RESTORIL [Concomitant]
     Indication: INSOMNIA
     Dosage: 15-30 MG
     Route: 048
  8. WELLBUTRIN [Concomitant]
     Dosage: SR ONE TAB EVERY MORNING
     Route: 048
  9. WELLBUTRIN [Concomitant]
     Dosage: XL 150-300 MG
  10. MILK OF MAGNESIA TAB [Concomitant]
     Dosage: 30-35 ML AS REQUIRED
     Route: 048
  11. NITROSTAT [Concomitant]
  12. FIORICET [Concomitant]
     Indication: HEADACHE
     Dosage: Q4H PRN
     Route: 048
  13. VENTOLIN [Concomitant]
     Dosage: 2 PUFFS Q4H PRN, 2 PUFFS Q6H PRN
     Route: 048
  14. ATIVAN [Concomitant]
     Indication: ANXIETY
     Dosage: 1 MG Q4H PRN
     Route: 048
  15. ELAVIL [Concomitant]
     Dosage: 25 MG THREE TIME A DAY, 100 MG AT BEDTIME
     Route: 048
  16. SYNTHROID [Concomitant]
     Route: 048
  17. PROTONIX [Concomitant]
     Route: 048
  18. ZOLOFT [Concomitant]
     Dosage: 100-400 MG
     Route: 048
  19. LOTREL [Concomitant]
     Dosage: 5/20 MG
     Route: 048
  20. KLOR-CON [Concomitant]
     Dosage: 20-40 EQ
     Route: 048
  21. PLAVIX [Concomitant]
     Route: 048
  22. BENADRYL [Concomitant]
     Dosage: 25 MG TID PRN
     Route: 048
  23. BENADRYL [Concomitant]
     Dosage: 50 MG Q6H PRN
  24. LOVENOX [Concomitant]
  25. PEPCID [Concomitant]
     Route: 048
  26. LASIX [Concomitant]
     Route: 048
  27. DIOVAN [Concomitant]
     Dosage: 40-80 MG
     Route: 048
  28. METOPROLOL TARTRATE [Concomitant]
     Route: 048
  29. AMBIEN [Concomitant]
     Dosage: 5 MG QHS PRN
     Route: 048
  30. PAXIL CR [Concomitant]
     Route: 048
  31. ZYPREXA [Concomitant]
     Route: 048
  32. CLARITIN [Concomitant]
     Dosage: 10 MG DISPENSED
  33. VIOXX [Concomitant]
     Indication: ARTHRITIS
     Route: 048
  34. THEO-DUR [Concomitant]
     Route: 048
  35. AZMACORT [Concomitant]
     Dosage: 4 PUFFS BID
  36. CATAPRES [Concomitant]
     Route: 048
  37. GLYBURIDE [Concomitant]
     Dosage: 5 MG BEFORE BREAKFAST
     Route: 048
  38. PERCOCET [Concomitant]
     Dosage: 5/325 MG TID PRN
     Route: 048
  39. FLEXERIL [Concomitant]
     Route: 048
  40. CELEXA [Concomitant]
     Dosage: 30-25 MG
     Route: 048
  41. VALIUM [Concomitant]
     Route: 048
  42. VICODIN [Concomitant]
     Dosage: 5/500 MG DISPENSED
  43. SINEQUAN [Concomitant]
     Dosage: DISPENSED
  44. NORVASC [Concomitant]
     Route: 048

REACTIONS (17)
  - ANGINA UNSTABLE [None]
  - ASTHMA [None]
  - CHEST PAIN [None]
  - DENTAL CARIES [None]
  - DIABETES MELLITUS [None]
  - DYSFUNCTIONAL UTERINE BLEEDING [None]
  - EAR PAIN [None]
  - FATIGUE [None]
  - HYPERGLYCAEMIA [None]
  - HYPERTENSION [None]
  - LOCAL SWELLING [None]
  - MAJOR DEPRESSION [None]
  - MUSCLE STRAIN [None]
  - PAIN IN EXTREMITY [None]
  - RESPIRATORY DISORDER [None]
  - SLEEP APNOEA SYNDROME [None]
  - SUICIDAL IDEATION [None]
